FAERS Safety Report 8895650 (Version 2)
Quarter: 2012Q4

REPORT INFORMATION
  Report Type: 
  Country: DE (occurrence: DE)
  Receive Date: 20121107
  Receipt Date: 20121130
  Transmission Date: 20130627
  Serious: Yes (Hospitalization, Other)
  Sender: FDA-Public Use
  Company Number: DE-WATSON-2012-18454

PATIENT
  Sex: Female
  Weight: 3 kg

DRUGS (2)
  1. MORPHINE SULFATE (UNKNOWN) [Suspect]
     Indication: PAIN
     Dosage: ^only when needed^
     Route: 064
  2. OXYCODONE [Suspect]
     Indication: PAIN
     Dosage: 280 mg daily
     Route: 064

REACTIONS (3)
  - Drug withdrawal syndrome neonatal [Recovered/Resolved]
  - Atrial septal defect [Unknown]
  - Small for dates baby [Unknown]
